FAERS Safety Report 8473525-X (Version None)
Quarter: 2012Q2

REPORT INFORMATION
  Report Type: 
  Country: None (occurrence: None)
  Receive Date: 20120628
  Receipt Date: 20120625
  Transmission Date: 20120825
  Serious: Yes (Other)
  Sender: FDA-Public Use
  Company Number: US-AMGEN-USASP2012039253

PATIENT
  Age: 49 Year
  Sex: Female

DRUGS (1)
  1. ENBREL [Suspect]
     Indication: RHEUMATOID ARTHRITIS
     Dosage: 50 MG, QWK
     Dates: start: 20120615

REACTIONS (5)
  - VAGINAL HAEMORRHAGE [None]
  - FAECES HARD [None]
  - RECTAL HAEMORRHAGE [None]
  - EPISTAXIS [None]
  - INJECTION SITE PAIN [None]
